FAERS Safety Report 13335316 (Version 1)
Quarter: 2017Q1

REPORT INFORMATION
  Report Type: Spontaneous
  Country: US (occurrence: US)
  Receive Date: 20170314
  Receipt Date: 20170314
  Transmission Date: 20170428
  Serious: No
  Sender: FDA-Public Use
  Company Number: US-PFIZER INC-2017110521

PATIENT
  Sex: Female

DRUGS (1)
  1. LYRICA [Suspect]
     Active Substance: PREGABALIN
     Indication: NERVE INJURY
     Dosage: UNK

REACTIONS (7)
  - Intentional product use issue [Unknown]
  - Pain [Unknown]
  - Intentional product misuse [Unknown]
  - Muscle spasms [Unknown]
  - Product use issue [Unknown]
  - Paraesthesia [Unknown]
  - Screaming [Unknown]
